FAERS Safety Report 13318041 (Version 2)
Quarter: 2017Q1

REPORT INFORMATION
  Report Type: Spontaneous
  Country: NL (occurrence: NL)
  Receive Date: 20170310
  Receipt Date: 20170316
  Transmission Date: 20170428
  Serious: Yes (Disabling, Other)
  Sender: FDA-Public Use
  Company Number: NL-BRISTOL-MYERS SQUIBB COMPANY-BMS-2017-019045

PATIENT
  Age: 55 Year
  Sex: Male

DRUGS (2)
  1. KENACORT-A [Suspect]
     Active Substance: TRIAMCINOLONE
     Indication: BURSITIS
     Dosage: UNK
     Route: 014
     Dates: start: 20161228
  2. KENACORT-A [Suspect]
     Active Substance: TRIAMCINOLONE
     Indication: PRODUCT USED FOR UNKNOWN INDICATION
     Dosage: UNK
     Route: 030
     Dates: start: 20170111

REACTIONS (5)
  - Headache [Not Recovered/Not Resolved]
  - Nerve injury [Unknown]
  - Epistaxis [Unknown]
  - Muscle spasms [Not Recovered/Not Resolved]
  - Tinnitus [Not Recovered/Not Resolved]

NARRATIVE: CASE EVENT DATE: 20161228
